FAERS Safety Report 8007464-5 (Version None)
Quarter: 2011Q4

REPORT INFORMATION
  Report Type: 
  Country: None (occurrence: None)
  Receive Date: 20111227
  Receipt Date: 20111214
  Transmission Date: 20120403
  Serious: Yes (Hospitalization, Other)
  Sender: FDA-Public Use
  Company Number: GB-MILLENNIUM PHARMACEUTICALS, INC.-2011-06332

PATIENT

DRUGS (4)
  1. DEXAMETHASONE [Suspect]
     Indication: MULTIPLE MYELOMA
     Dosage: 12 MG, UNK
     Route: 065
  2. VELCADE [Suspect]
     Indication: MULTIPLE MYELOMA
     Dosage: UNK
     Route: 065
  3. THALIDOMIDE [Suspect]
     Indication: MULTIPLE MYELOMA
     Route: 065
  4. CYCLOPHOSPHAMIDE [Suspect]
     Indication: MULTIPLE MYELOMA
     Route: 065

REACTIONS (8)
  - HYPOTENSION [None]
  - TACHYCARDIA [None]
  - SOMNOLENCE [None]
  - PNEUMONIA [None]
  - DECREASED APPETITE [None]
  - HYPOGLYCAEMIA [None]
  - EPILEPSY [None]
  - TREMOR [None]
